FAERS Safety Report 6213171-1 (Version None)
Quarter: 2009Q2

REPORT INFORMATION
  Report Type: 
  Country: None (occurrence: None)
  Receive Date: 20090602
  Receipt Date: 20090602
  Transmission Date: 20091009
  Serious: Yes (Hospitalization, Disabling)
  Sender: FDA-Public Use
  Company Number: None

PATIENT
  Age: 62 Year
  Sex: Female
  Weight: 75.7507 kg

DRUGS (3)
  1. CRESTOR [Suspect]
     Indication: BLOOD CHOLESTEROL INCREASED
     Dosage: 40 MGS Q D PO
     Route: 048
     Dates: start: 20090515, end: 20090530
  2. CRESTOR [Suspect]
     Indication: BLOOD TRIGLYCERIDES
     Dosage: 40 MGS Q D PO
     Route: 048
     Dates: start: 20090515, end: 20090530
  3. CRESTOR [Concomitant]

REACTIONS (8)
  - ARTHRALGIA [None]
  - BLOOD TEST ABNORMAL [None]
  - GAIT DISTURBANCE [None]
  - MUSCLE ATROPHY [None]
  - MUSCULAR WEAKNESS [None]
  - PAIN IN EXTREMITY [None]
  - THROMBOSIS [None]
  - WALKING AID USER [None]
